FAERS Safety Report 11836742 (Version 3)
Quarter: 2016Q1

REPORT INFORMATION
  Report Type: Spontaneous
  Country: GB (occurrence: GB)
  Receive Date: 20151215
  Receipt Date: 20160212
  Transmission Date: 20160525
  Serious: Yes (Congenital Anomaly)
  Sender: FDA-Public Use
  Company Number: GB-TEVA-615521ACC

PATIENT

DRUGS (5)
  1. VENLAFAXINE [Suspect]
     Active Substance: VENLAFAXINE HYDROCHLORIDE
     Indication: DEPRESSION
     Dosage: 150MG AM 75MG PM
     Route: 064
  2. CYCLIZINE HYDROCHLORIDE [Concomitant]
     Active Substance: CYCLIZINE HYDROCHLORIDE
     Indication: HYPEREMESIS GRAVIDARUM
     Route: 064
  3. METOCLOPRAMIDE. [Concomitant]
     Active Substance: METOCLOPRAMIDE
     Indication: HYPEREMESIS GRAVIDARUM
     Route: 064
     Dates: start: 201511
  4. FOLIC ACID. [Concomitant]
     Active Substance: FOLIC ACID
     Dosage: 400 MICROGRAM DAILY; OVER THE COUNTER
     Route: 064
  5. PROCHLORPERAZINE. [Concomitant]
     Active Substance: PROCHLORPERAZINE
     Indication: HYPEREMESIS GRAVIDARUM
     Route: 064
     Dates: start: 201103

REACTIONS (3)
  - Exposure during pregnancy [Unknown]
  - Hydrops foetalis [Not Recovered/Not Resolved]
  - Cytogenetic abnormality [Not Recovered/Not Resolved]

NARRATIVE: CASE EVENT DATE: 20151123
